FAERS Safety Report 9364566 (Version 1)
Quarter: 2013Q2

REPORT INFORMATION
  Report Type: Spontaneous
  Country: TR (occurrence: TR)
  Receive Date: 20130624
  Receipt Date: 20130624
  Transmission Date: 20140414
  Serious: Yes (Other)
  Sender: FDA-Public Use
  Company Number: PHHY2013TR024423

PATIENT
  Age: 22 Year
  Sex: Female

DRUGS (2)
  1. CARBAMAZEPINE [Suspect]
     Indication: EPILEPSY
     Dosage: UNK UKN, UNK
  2. CARBAMAZEPINE [Suspect]
     Dosage: 600 MG, BID

REACTIONS (3)
  - Convulsion [Unknown]
  - Speech disorder [Recovering/Resolving]
  - Fatigue [Unknown]
